FAERS Safety Report 8854589 (Version 3)
Quarter: 2015Q4

REPORT INFORMATION
  Report Type: Spontaneous
  Country: US (occurrence: US)
  Receive Date: 20121023
  Receipt Date: 20151006
  Transmission Date: 20160305
  Serious: Yes (Death, Hospitalization, Disabling, Other)
  Sender: FDA-Public Use
  Company Number: US-009507513-1210USA006915

PATIENT
  Sex: Female
  Weight: 53 kg

DRUGS (5)
  1. FOSAMAX [Suspect]
     Active Substance: ALENDRONATE SODIUM
     Indication: OSTEOPENIA
     Dosage: 70 MG, QW
     Route: 048
     Dates: start: 20010413, end: 2011
  2. VITAMINS (UNSPECIFIED) [Concomitant]
     Active Substance: VITAMINS
     Indication: PRODUCT USED FOR UNKNOWN INDICATION
     Dosage: UNK
     Route: 065
  3. ASPIRIN. [Concomitant]
     Active Substance: ASPIRIN
     Indication: PRODUCT USED FOR UNKNOWN INDICATION
     Dosage: UNK
     Route: 065
  4. FOSAMAX [Suspect]
     Active Substance: ALENDRONATE SODIUM
     Indication: OSTEOPOROSIS
     Dosage: 10 MG, QD
     Route: 048
     Dates: start: 20001108, end: 20010312
  5. CITRACAL + D [Concomitant]
     Active Substance: CALCIUM CITRATE\VITAMIN D
     Indication: PRODUCT USED FOR UNKNOWN INDICATION
     Route: 065

REACTIONS (17)
  - Thyroid neoplasm [Not Recovered/Not Resolved]
  - Femur fracture [Unknown]
  - Hepatic cyst [Unknown]
  - Cardiac arrest [Fatal]
  - Dementia [Unknown]
  - Osteoporosis [Unknown]
  - Carcinoid tumour of the small bowel [Not Recovered/Not Resolved]
  - Osteoarthritis [Unknown]
  - Fall [Unknown]
  - Hypertension [Unknown]
  - Hypokalaemia [Unknown]
  - Coronary artery disease [Not Recovered/Not Resolved]
  - Cataract [Unknown]
  - Urinary tract infection pseudomonal [Unknown]
  - Low turnover osteopathy [Unknown]
  - Fall [Unknown]
  - Anaemia postoperative [Unknown]

NARRATIVE: CASE EVENT DATE: 200708
